FAERS Safety Report 5632830-2 (Version None)
Quarter: 2008Q1

REPORT INFORMATION
  Report Type: 
  Country: None (occurrence: None)
  Receive Date: 20080221
  Receipt Date: 20080218
  Transmission Date: 20080703
  Serious: Yes (Life-Threatening)
  Sender: FDA-Public Use
  Company Number: KR-BRISTOL-MYERS SQUIBB COMPANY-14081004

PATIENT
  Age: 55 Year
  Sex: Male

DRUGS (4)
  1. SPRYCEL [Suspect]
     Indication: CHRONIC MYELOID LEUKAEMIA
     Route: 048
     Dates: start: 20080119
  2. CEFTIZOXIME SODIUM [Concomitant]
     Dates: start: 20080117, end: 20080120
  3. ISEPAMICIN [Concomitant]
     Dates: start: 20080117, end: 20080120
  4. ULTRACET [Concomitant]
     Dates: start: 20080117, end: 20080121

REACTIONS (2)
  - PULMONARY OEDEMA [None]
  - RESPIRATORY FAILURE [None]
